FAERS Safety Report 4280441-6 (Version None)
Quarter: 2004Q1

REPORT INFORMATION
  Report Type: 
  Country: None (occurrence: None)
  Receive Date: 20040127
  Receipt Date: 20040115
  Transmission Date: 20041129
  Serious: Yes (Hospitalization)
  Sender: FDA-Public Use
  Company Number: DE-JNJFOC-20040102632

PATIENT
  Age: 56 Year
  Sex: Male

DRUGS (2)
  1. DURAGESIC [Suspect]
     Indication: POLYNEUROPATHY
     Dosage: 200 UG/HR, TRANSDERMAL   7-8 TABLETS
     Route: 062
  2. SEVREDOL (TABLETS) MORPHINE SULFATE [Concomitant]

REACTIONS (3)
  - DRUG INEFFECTIVE [None]
  - MEDICATION ERROR [None]
  - OVERDOSE [None]
